FAERS Safety Report 16862624 (Version 3)
Quarter: 2020Q1

REPORT INFORMATION
  Report Type: Spontaneous
  Country: US (occurrence: US)
  Receive Date: 20190927
  Receipt Date: 20200102
  Transmission Date: 20200409
  Serious: Yes (Hospitalization, Other)
  Sender: FDA-Public Use
  Company Number: US-MALLINCKRODT-T201906600

PATIENT
  Sex: Female

DRUGS (4)
  1. H.P. ACTHAR [Suspect]
     Active Substance: CORTICOTROPIN
     Dosage: 80 UNITS, TWICE WEEKLY
     Route: 058
     Dates: start: 201912
  2. H.P. ACTHAR [Suspect]
     Active Substance: CORTICOTROPIN
     Indication: FIBROMYALGIA
     Dosage: 80 UNITS (1ML),  TWO TIMES A WEEK
     Route: 058
     Dates: start: 201908
  3. PREDNISONE. [Concomitant]
     Active Substance: PREDNISONE
     Indication: PRODUCT USED FOR UNKNOWN INDICATION
     Dosage: UNK
     Route: 065
  4. H.P. ACTHAR [Suspect]
     Active Substance: CORTICOTROPIN
     Dosage: 80 UNITS, TWICE WEEKLY
     Route: 058
     Dates: end: 2019

REACTIONS (12)
  - Immune system disorder [Unknown]
  - Intrauterine infection [Unknown]
  - Intestinal obstruction [Unknown]
  - Systemic lupus erythematosus [Unknown]
  - Haemorrhoids [Unknown]
  - Muscle spasms [Unknown]
  - Pain in extremity [Unknown]
  - Urinary tract infection [Unknown]
  - Haemorrhoid operation [Unknown]
  - Vaginal discharge [Unknown]
  - Product use in unapproved indication [Unknown]
  - Infection susceptibility increased [Unknown]

NARRATIVE: CASE EVENT DATE: 2019
